FAERS Safety Report 26099138 (Version 1)
Quarter: 2025Q4

REPORT INFORMATION
  Report Type: Spontaneous
  Country: EU (occurrence: EU)
  Receive Date: 20251128
  Receipt Date: 20251128
  Transmission Date: 20260117
  Serious: Yes (Death)
  Sender: GENMAB
  Company Number: None

PATIENT
  Age: 67 Year
  Sex: Male
  Weight: 55 kg

DRUGS (3)
  1. EPCORITAMAB [Suspect]
     Active Substance: EPCORITAMAB
     Indication: Lymphoma
     Dosage: 0.16 MILLIGRAM TOTAL (PRIMERA DOSIS DE ESCALADA 4 MG/0.8 ML SOLUTION FOR INJECTION, 1 VIAL OF 0.8 ML
     Route: 058
     Dates: start: 20251110
  2. TOCILIZUMAB [Suspect]
     Active Substance: TOCILIZUMAB
     Indication: Cytokine release syndrome
     Dosage: 424 MILLIGRAM (CALCULATED FOR 53 KG), URGENT SINGLE DOSE
     Route: 042
     Dates: start: 20251111, end: 20251111
  3. DEXAMETHASONE ACETATE [Suspect]
     Active Substance: DEXAMETHASONE ACETATE
     Indication: Cytokine release syndrome
     Dosage: 10 MILLIGRAM (6H4 MG/ML SOLUTION FOR INJECTION, 100 X 1-ML AMPOULES (GENERIC)
     Route: 042
     Dates: start: 20251111, end: 20251112

REACTIONS (1)
  - Pneumonia pseudomonal [Fatal]

NARRATIVE: CASE EVENT DATE: 20251111
